FAERS Safety Report 5677161-X (Version None)
Quarter: 2008Q1

REPORT INFORMATION
  Report Type: 
  Country: None (occurrence: None)
  Receive Date: 20080324
  Receipt Date: 20080314
  Transmission Date: 20080703
  Serious: Yes (Hospitalization)
  Sender: FDA-Public Use
  Company Number: B0497785A

PATIENT
  Age: 35 Year
  Sex: Female
  Weight: 65 kg

DRUGS (6)
  1. DEROXAT [Suspect]
     Indication: ANXIETY
     Dosage: 20MG PER DAY
     Route: 048
     Dates: start: 20071012, end: 20071218
  2. ASPIRIN [Suspect]
     Indication: HEADACHE
     Dosage: 500MG SINGLE DOSE
     Route: 048
     Dates: start: 20071123, end: 20071123
  3. LEXOMIL [Concomitant]
     Indication: ANXIETY
     Dosage: 1TAB PER DAY
     Route: 048
     Dates: start: 20071012
  4. SPASMOPRIV [Concomitant]
     Indication: COLITIS
     Dosage: 1TAB THREE TIMES PER DAY
     Route: 048
     Dates: start: 20071012
  5. PARIET [Concomitant]
     Indication: GASTROOESOPHAGEAL REFLUX DISEASE
     Dosage: 1TAB IN THE MORNING
     Route: 048
     Dates: start: 20071012
  6. HAVLANE [Concomitant]
     Indication: INSOMNIA
     Dosage: 1TAB IN THE MORNING
     Route: 048
     Dates: start: 20071012

REACTIONS (4)
  - ABDOMINAL PAIN [None]
  - COLITIS ISCHAEMIC [None]
  - DIARRHOEA [None]
  - RECTAL HAEMORRHAGE [None]
